FAERS Safety Report 5635633-8 (Version None)
Quarter: 2008Q1

REPORT INFORMATION
  Report Type: 
  Country: None (occurrence: None)
  Receive Date: 20080223
  Receipt Date: 20080212
  Transmission Date: 20080703
  Serious: Yes (Hospitalization)
  Sender: FDA-Public Use
  Company Number: US-ELI_LILLY_AND_COMPANY-US200802002569

PATIENT
  Sex: Female
  Weight: 134.69 kg

DRUGS (26)
  1. BYETTA [Suspect]
     Dosage: 10 UG, UNKNOWN
     Dates: end: 20070801
  2. GENOTROPIN [Concomitant]
     Indication: HYPOPITUITARISM
     Dosage: 0.1 MG, DAILY (1/D)
     Route: 058
  3. GENOTROPIN [Concomitant]
     Dosage: 0.2 MG, DAILY (1/D)
     Route: 058
  4. GENOTROPIN [Concomitant]
     Dosage: 0.3 MG, DAILY (1/D)
     Route: 058
  5. GLIMEPIRIDE [Concomitant]
     Dosage: UNK, DAILY (1/D)
  6. ROSIGLITAZONE MALEATE [Concomitant]
  7. METFORMIN HCL [Concomitant]
     Dosage: 2000 MG, DAILY (1/D)
  8. CARDIZEM CD [Concomitant]
     Dosage: 240 MG, DAILY (1/D)
  9. ZOLOFT [Concomitant]
     Dosage: 75 MG, DAILY (1/D)
  10. VITAMIN D [Concomitant]
     Dosage: 50000 IU, WEEKLY (1/W)
  11. PEPCID [Concomitant]
     Dosage: 20 MG, 2/D
  12. FOLTX [Concomitant]
     Dosage: UNK, DAILY (1/D)
  13. CYTOMEL [Concomitant]
     Dosage: 25 UG, 3/D
  14. FROVA [Concomitant]
     Dosage: 2.5 MG, AS NEEDED
  15. LIPITOR [Concomitant]
     Dosage: 10 MG, DAILY (1/D)
  16. ALBUTEROL [Concomitant]
     Dosage: UNK, AS NEEDED
  17. ZYRTEC [Concomitant]
     Dosage: 10 MG, DAILY (1/D)
  18. NEURONTIN [Concomitant]
     Dosage: 100 MG, EACH MORNING
  19. NEURONTIN [Concomitant]
     Dosage: 200 MG, EACH EVENING
  20. LORCET [Concomitant]
     Dosage: UNK, EACH EVENING
  21. ELAVIL [Concomitant]
     Dosage: 25 MG, EACH EVENING
  22. CELEBREX [Concomitant]
     Dosage: 200 MG, DAILY (1/D)
  23. QUESTRAN [Concomitant]
     Dosage: 4 G, 4/D
  24. LASIX [Concomitant]
     Dosage: 40 MG, 2/D
  25. ASPIRIN [Concomitant]
     Dosage: 81 MG, DAILY (1/D)
  26. SINGULAIR [Concomitant]
     Dosage: 10 MG, DAILY (1/D)

REACTIONS (12)
  - ABDOMINAL PAIN UPPER [None]
  - FATIGUE [None]
  - HAEMATEMESIS [None]
  - HEADACHE [None]
  - HYPOACUSIS [None]
  - IMPAIRED GASTRIC EMPTYING [None]
  - MYALGIA [None]
  - NAUSEA [None]
  - PANCREATITIS [None]
  - VISUAL DISTURBANCE [None]
  - VOMITING [None]
  - WEIGHT INCREASED [None]
